FAERS Safety Report 23529047 (Version 1)
Quarter: 2024Q1

REPORT INFORMATION
  Report Type: Spontaneous
  Country: US (occurrence: US)
  Receive Date: 20240216
  Receipt Date: 20240216
  Transmission Date: 20240409
  Serious: No
  Sender: FDA-Public Use
  Company Number: US-AUROBINDO-AUR-APL-2023-048481

PATIENT
  Sex: Male

DRUGS (1)
  1. FAMOTIDINE [Suspect]
     Active Substance: FAMOTIDINE
     Indication: Acidosis
     Dosage: 2 DOSAGE FORM (IN MORNING)
     Route: 065
     Dates: start: 20230711

REACTIONS (2)
  - Accidental overdose [Unknown]
  - Inappropriate schedule of product administration [Unknown]
